FAERS Safety Report 20679769 (Version 13)
Quarter: 2024Q1

REPORT INFORMATION
  Report Type: Spontaneous
  Country: US (occurrence: US)
  Receive Date: 20220406
  Receipt Date: 20240220
  Transmission Date: 20240410
  Serious: Yes (Other)
  Sender: FDA-Public Use
  Company Number: US-PFIZER INC-202101723435

PATIENT
  Age: 84 Year
  Sex: Female
  Weight: 71 kg

DRUGS (6)
  1. IBRANCE [Suspect]
     Active Substance: PALBOCICLIB
     Indication: Breast cancer metastatic
     Dosage: 125 MG, CYCLIC, 21 DAYS A MONTH
     Dates: start: 202110
  2. IBRANCE [Suspect]
     Active Substance: PALBOCICLIB
     Indication: Bone cancer
     Dosage: 125 MG
     Dates: end: 20220629
  3. IBRANCE [Suspect]
     Active Substance: PALBOCICLIB
     Dosage: 75 MG
  4. IBRANCE [Suspect]
     Active Substance: PALBOCICLIB
     Dosage: 125 MG, CYCLIC (TAKE 1 TABLET: ON DAYS 1-21 OF EACH CHEMO CYCLE)
     Route: 048
     Dates: start: 20231218
  5. IBRANCE [Suspect]
     Active Substance: PALBOCICLIB
     Dosage: 125 MG, CYCLIC (1 TABLET DAILY ON DAYS 1-21 OF EACH 28-DAY CHEMO CYCLE)
     Route: 048
     Dates: start: 20231220
  6. LETROZOLE [Concomitant]
     Active Substance: LETROZOLE
     Dosage: UNK
     Dates: start: 202110

REACTIONS (4)
  - Weight decreased [Unknown]
  - Malaise [Unknown]
  - Neoplasm progression [Unknown]
  - Viral infection [Unknown]

NARRATIVE: CASE EVENT DATE: 20220630
